FAERS Safety Report 4535836-X (Version None)
Quarter: 2004Q4

REPORT INFORMATION
  Report Type: 
  Country: None (occurrence: None)
  Receive Date: 20041223
  Receipt Date: 20040414
  Transmission Date: 20050328
  Serious: No
  Sender: FDA-Public Use
  Company Number: US-GLAXOSMITHKLINE-A0507167A

PATIENT
  Age: 67 Year
  Sex: Female

DRUGS (9)
  1. FLONASE [Suspect]
     Dosage: 50MCG TWICE PER DAY
     Route: 045
  2. CELEBREX [Concomitant]
  3. PROTONIX [Concomitant]
  4. EXTRA STRENGTH TYLENOL [Concomitant]
  5. MULTIVITAMIN [Concomitant]
  6. TRAZODONE HCL [Concomitant]
  7. TRAMADOL HCL [Concomitant]
  8. NASACORT [Concomitant]
  9. ASTELIN [Concomitant]

REACTIONS (1)
  - EPISTAXIS [None]
